FAERS Safety Report 25585562 (Version 1)
Quarter: 2025Q3

REPORT INFORMATION
  Report Type: Spontaneous
  Country: US (occurrence: None)
  Receive Date: 20250718
  Receipt Date: 20250718
  Transmission Date: 20251021
  Serious: Yes (Other)
  Sender: FDA-CTU
  Company Number: None

PATIENT
  Age: 30 Year
  Sex: Female

DRUGS (2)
  1. HIZENTRA [Suspect]
     Active Substance: HUMAN IMMUNOGLOBULIN G
     Indication: Primary immunodeficiency syndrome
     Route: 058
     Dates: start: 20250717
  2. HIZENTRA [Suspect]
     Active Substance: HUMAN IMMUNOGLOBULIN G
     Indication: Primary immunodeficiency syndrome
     Route: 058
     Dates: start: 20250717

REACTIONS (5)
  - Infusion related reaction [None]
  - Infusion site pruritus [None]
  - Infusion site erythema [None]
  - Skin disorder [None]
  - Infusion site pain [None]

NARRATIVE: CASE EVENT DATE: 20250718
